FAERS Safety Report 9726563 (Version 2)
Quarter: 2014Q1

REPORT INFORMATION
  Report Type: Spontaneous
  Country: US (occurrence: US)
  Receive Date: 20131203
  Receipt Date: 20140211
  Transmission Date: 20141002
  Serious: Yes (Hospitalization)
  Sender: FDA-Public Use
  Company Number: US-GLAXOSMITHKLINE-A1051749A

PATIENT
  Age: 84 Year
  Sex: Female

DRUGS (6)
  1. ADVAIR [Suspect]
     Indication: EMPHYSEMA
     Dosage: 1PUFF TWICE PER DAY
     Route: 055
     Dates: start: 2012
  2. SPIRIVA [Concomitant]
  3. CALCIUM [Concomitant]
  4. VITAMIN D [Concomitant]
  5. UNKNOWN [Concomitant]
  6. FOSAMAX [Concomitant]

REACTIONS (6)
  - Clostridium difficile infection [Unknown]
  - Surgery [Unknown]
  - Dyspnoea [Unknown]
  - Alopecia [Unknown]
  - Gait disturbance [Unknown]
  - Walking aid user [Unknown]
